FAERS Safety Report 26215172 (Version 1)
Quarter: 2025Q4

REPORT INFORMATION
  Report Type: Report from Study
  Country: US (occurrence: US)
  Receive Date: 20251230
  Receipt Date: 20251230
  Transmission Date: 20260117
  Serious: Yes (Other)
  Sender: ABBVIE
  Company Number: US-ABBVIE-6608480

PATIENT
  Age: 69 Year
  Sex: Male

DRUGS (1)
  1. VENCLEXTA [Suspect]
     Active Substance: VENETOCLAX
     Indication: Product used for unknown indication
     Route: 048
     Dates: start: 20251022

REACTIONS (8)
  - Squamous cell carcinoma [Unknown]
  - Nasopharyngitis [Recovered/Resolved]
  - White blood cell count decreased [Unknown]
  - Constipation [Unknown]
  - Diarrhoea [Unknown]
  - Suture rupture [Unknown]
  - Post procedural haemorrhage [Unknown]
  - Anaemia [Unknown]

NARRATIVE: CASE EVENT DATE: 20250101
